FAERS Safety Report 14819690 (Version 5)
Quarter: 2019Q1

REPORT INFORMATION
  Report Type: Report from Study
  Country: US (occurrence: US)
  Receive Date: 20180427
  Receipt Date: 20190328
  Transmission Date: 20190417
  Serious: Yes (Hospitalization, Other)
  Sender: FDA-Public Use
  Company Number: PHEH2018US016370

PATIENT
  Sex: Female

DRUGS (1)
  1. COSENTYX [Suspect]
     Active Substance: SECUKINUMAB
     Indication: PRODUCT USED FOR UNKNOWN INDICATION
     Dosage: UNK
     Route: 065
     Dates: start: 201711

REACTIONS (8)
  - Lymphadenopathy [Unknown]
  - Drug ineffective [Unknown]
  - Coccidioidomycosis [Unknown]
  - Gait disturbance [Unknown]
  - Lung disorder [Unknown]
  - Haemoptysis [Unknown]
  - Pain [Unknown]
  - Condition aggravated [Unknown]
